FAERS Safety Report 9931176 (Version 4)
Quarter: 2014Q2

REPORT INFORMATION
  Report Type: Spontaneous
  Country: JP (occurrence: JP)
  Receive Date: 20140228
  Receipt Date: 20140509
  Transmission Date: 20141212
  Serious: Yes (Life-Threatening, Hospitalization)
  Sender: FDA-Public Use
  Company Number: JP-ROCHE-1357135

PATIENT
  Age: 72 Year
  Sex: Female
  Weight: 49 kg

DRUGS (4)
  1. ACTIVACIN [Suspect]
     Indication: CEREBRAL INFARCTION
     Dosage: 2 HOURS AND 30 MINUTES; DOSE: 1.86 MILLION IU ONCE IN A DAY.
     Route: 042
     Dates: start: 20131106, end: 20131106
  2. SOLACET F [Concomitant]
     Route: 065
     Dates: start: 20131106
  3. NICARDIPINE [Concomitant]
  4. EDARAVONE [Concomitant]
     Route: 065
     Dates: start: 20131106, end: 20131106

REACTIONS (1)
  - Acute myocardial infarction [Recovering/Resolving]
